FAERS Safety Report 5535232-2 (Version None)
Quarter: 2007Q4

REPORT INFORMATION
  Report Type: 
  Country: None (occurrence: None)
  Receive Date: 20071206
  Receipt Date: 20071205
  Transmission Date: 20080405
  Serious: Yes (Other)
  Sender: FDA-Public Use
  Company Number: AU-BRISTOL-MYERS SQUIBB COMPANY-14004485

PATIENT
  Sex: Female

DRUGS (6)
  1. HYDREA [Suspect]
     Dates: start: 20050101
  2. GARLIC [Concomitant]
  3. AVAPRO [Concomitant]
  4. PANTOPRAZOLE SODIUM [Concomitant]
  5. SERC [Concomitant]
  6. ALLOPURINOL [Concomitant]

REACTIONS (1)
  - PANCREATITIS [None]
